FAERS Safety Report 20496731 (Version 2)
Quarter: 2022Q1

REPORT INFORMATION
  Report Type: Spontaneous
  Country: US (occurrence: US)
  Receive Date: 20220221
  Receipt Date: 20220303
  Transmission Date: 20220423
  Serious: No
  Sender: FDA-Public Use
  Company Number: US-BAYER-2022A026012

PATIENT
  Sex: Female

DRUGS (1)
  1. KERENDIA [Suspect]
     Active Substance: FINERENONE
     Dosage: 10 MG
     Dates: start: 202201, end: 202202

REACTIONS (4)
  - Dry mouth [Recovered/Resolved]
  - Heart rate irregular [Recovered/Resolved]
  - Thirst [Recovered/Resolved]
  - Vision blurred [Recovered/Resolved]
